FAERS Safety Report 4390822-8 (Version None)
Quarter: 2004Q3

REPORT INFORMATION
  Report Type: 
  Country: None (occurrence: None)
  Receive Date: 20040706
  Receipt Date: 20040706
  Transmission Date: 20050211
  Serious: Yes (Life-Threatening)
  Sender: FDA-Public Use
  Company Number: None

PATIENT
  Sex: Female
  Weight: 72.3 kg

DRUGS (4)
  1. PACLITAXEL [Suspect]
     Indication: METASTASES TO PERITONEUM
     Dosage: 325 MG DAY ONE INTRAVENOUS
     Route: 042
     Dates: start: 20040112, end: 20040112
  2. DEXAMETHASONE [Concomitant]
  3. DIPHENHYDRAMINE [Concomitant]
  4. RANITIDINE [Concomitant]

REACTIONS (6)
  - CHEST PAIN [None]
  - DRUG HYPERSENSITIVITY [None]
  - DYSPNOEA [None]
  - FLUSHING [None]
  - OXYGEN SATURATION DECREASED [None]
  - TACHYCARDIA [None]
